FAERS Safety Report 21239450 (Version 1)
Quarter: 2022Q3

REPORT INFORMATION
  Report Type: Spontaneous
  Country: US (occurrence: None)
  Receive Date: 20220821
  Receipt Date: 20220821
  Transmission Date: 20221027
  Serious: Yes (Hospitalization)
  Sender: FDA-Public Use
  Company Number: None

PATIENT
  Age: 50 Year
  Sex: Female
  Weight: 71.1 kg

DRUGS (8)
  1. MOLNUPIRAVIR [Suspect]
     Active Substance: MOLNUPIRAVIR
     Indication: COVID-19 treatment
     Dosage: OTHER FREQUENCY : 8 CAPSULES A DAY;?
     Route: 048
     Dates: start: 20220810, end: 20220814
  2. Citalram [Concomitant]
  3. norerhindrone [Concomitant]
  4. PREDNISONE [Concomitant]
     Active Substance: PREDNISONE
  5. benydral [Concomitant]
  6. VITAMIN D NOS [Concomitant]
     Active Substance: VITAMIN D NOS
  7. VITAMIN C [Concomitant]
     Active Substance: ASCORBIC ACID
  8. FISH OIL [Concomitant]
     Active Substance: FISH OIL

REACTIONS (1)
  - Urticaria [None]

NARRATIVE: CASE EVENT DATE: 20220819
